FAERS Safety Report 21217356 (Version 1)
Quarter: 2022Q3

REPORT INFORMATION
  Report Type: Spontaneous
  Country: US (occurrence: None)
  Receive Date: 20220816
  Receipt Date: 20220816
  Transmission Date: 20221026
  Serious: Yes (Other)
  Sender: FDA-Public Use
  Company Number: None

PATIENT
  Sex: Male
  Weight: 99 kg

DRUGS (3)
  1. SIMPONI [Suspect]
     Active Substance: GOLIMUMAB
     Indication: Psoriasis
  2. hydrocortisone valerate oint 0.2% [Concomitant]
  3. prednisone tab 1 mg [Concomitant]

REACTIONS (3)
  - Dry skin [None]
  - Scab [None]
  - Drug ineffective [None]
